FAERS Safety Report 19573557 (Version 2)
Quarter: 2021Q3

REPORT INFORMATION
  Report Type: Spontaneous
  Country: DE (occurrence: DE)
  Receive Date: 20210717
  Receipt Date: 20210729
  Transmission Date: 20211014
  Serious: Yes (Death, Life-Threatening, Hospitalization, Other)
  Sender: FDA-Public Use
  Company Number: DE-ACCORD-231779

PATIENT
  Age: 3 Year
  Sex: Female

DRUGS (2)
  1. PREDNISOLONE. [Suspect]
     Active Substance: PREDNISOLONE
     Indication: AUTOINFLAMMATORY DISEASE
     Dosage: LAST ADMINISTRATION 3 DAYS PRIOR TO HOSPITAL ADMISSION
  2. METHOTREXATE. [Suspect]
     Active Substance: METHOTREXATE
     Indication: AUTOINFLAMMATORY DISEASE
     Dosage: LAST ADMINISTRATION 3 DAYS PRIOR TO HOSPITAL ADMISSION

REACTIONS (2)
  - COVID-19 [Fatal]
  - Off label use [Unknown]
